FAERS Safety Report 6133150-2 (Version None)
Quarter: 2009Q1

REPORT INFORMATION
  Report Type: 
  Country: None (occurrence: None)
  Receive Date: 20090325
  Receipt Date: 20090325
  Transmission Date: 20090719
  Serious: No
  Sender: FDA-Public Use
  Company Number: None

PATIENT
  Sex: Male

DRUGS (1)
  1. SIMVASTATIN [Suspect]
     Dosage: ONE TABLET AT BEDTIME PO
     Route: 048
     Dates: start: 20090116, end: 20090203

REACTIONS (1)
  - HEPATIC ENZYME INCREASED [None]
